FAERS Safety Report 12519889 (Version 1)
Quarter: 2016Q2

REPORT INFORMATION
  Report Type: Spontaneous
  Country: US (occurrence: US)
  Receive Date: 20160630
  Receipt Date: 20160630
  Transmission Date: 20160815
  Serious: No
  Sender: FDA-Public Use
  Company Number: US-PFIZER INC-3218707

PATIENT
  Age: 82 Year
  Sex: Female

DRUGS (2)
  1. PHYTOMENADIONE [Suspect]
     Active Substance: PHYTONADIONE
     Dosage: 10 MG, RUN FOR 10 MINS
     Route: 041
  2. PHYTOMENADIONE [Suspect]
     Active Substance: PHYTONADIONE
     Dosage: UNK

REACTIONS (3)
  - Tremor [Unknown]
  - Pyrexia [Unknown]
  - Chills [Unknown]
